FAERS Safety Report 9220657 (Version 2)
Quarter: 2013Q2

REPORT INFORMATION
  Report Type: Spontaneous
  Country: JP (occurrence: JP)
  Receive Date: 20130409
  Receipt Date: 20130625
  Transmission Date: 20140414
  Serious: Yes (Life-Threatening)
  Sender: FDA-Public Use
  Company Number: JP-BAYER-2013-043938

PATIENT
  Age: 73 Year
  Sex: Male
  Weight: 48 kg

DRUGS (12)
  1. NEXAVAR [Suspect]
     Indication: RENAL CELL CARCINOMA
     Dosage: 400 MG, BID
     Route: 048
     Dates: start: 20130305, end: 20130321
  2. FLIVAS [Concomitant]
     Dosage: 75 MG, QD
     Route: 048
  3. DIOVAN [Concomitant]
     Dosage: 120 MG, OM
     Route: 048
  4. CALBLOCK [Concomitant]
     Dosage: 8 MG, OM
     Route: 048
  5. THYRADIN S [Concomitant]
     Dosage: 50 ?G, OM
     Route: 048
  6. URINORM [Concomitant]
     Dosage: 50 MG, OM
     Route: 048
  7. TAKEPRON [Concomitant]
     Dosage: 15 MG, OM
     Route: 048
  8. MERISLON [Concomitant]
     Dosage: DAILY DOSE 18 MG
     Route: 048
  9. ADETPHOS [Concomitant]
     Dosage: DAILY DOSE 60 MG
     Route: 048
  10. SPIRIVA [Concomitant]
     Dosage: 18 ?G, OM
     Route: 055
  11. VOLTAREN [Concomitant]
     Indication: PAIN
     Dosage: DAILY DOSE 2.5 MG
     Route: 054
  12. LOXONIN [Concomitant]
     Dosage: DAILY DOSE 180 MG
     Route: 048

REACTIONS (1)
  - Shock [Recovered/Resolved with Sequelae]
